FAERS Safety Report 23925001 (Version 1)
Quarter: 2024Q2

REPORT INFORMATION
  Report Type: Spontaneous
  Country: US (occurrence: None)
  Receive Date: 20240531
  Receipt Date: 20240531
  Transmission Date: 20240715
  Serious: No
  Sender: FDA-Public Use
  Company Number: None

PATIENT

DRUGS (3)
  1. DIAZEPAM [Suspect]
     Active Substance: DIAZEPAM
  2. DIASTAT [Suspect]
     Active Substance: DIAZEPAM
     Route: 054
  3. MIDAZOLAM HYDROCHLORIDE [Suspect]
     Active Substance: MIDAZOLAM HYDROCHLORIDE

REACTIONS (1)
  - Incorrect route of product administration [None]
